FAERS Safety Report 7573921-9 (Version None)
Quarter: 2011Q2

REPORT INFORMATION
  Report Type: 
  Country: None (occurrence: None)
  Receive Date: 20110627
  Receipt Date: 20110620
  Transmission Date: 20111010
  Serious: Yes (Hospitalization)
  Sender: FDA-Public Use
  Company Number: B0728708A

PATIENT
  Age: 43 Year
  Sex: Female

DRUGS (9)
  1. BUPROPION HCL [Suspect]
     Dosage: 100MG TWICE PER DAY
     Route: 048
  2. DULOXETIME HYDROCHLORIDE [Concomitant]
     Indication: DEPRESSION
     Dosage: 120MG TWICE PER DAY
     Route: 065
  3. GLUCOSAMINE [Concomitant]
     Route: 065
  4. ASCORBIC ACID [Concomitant]
     Route: 065
  5. LEVOTHYROXINE SODIUM [Concomitant]
     Dosage: 50MCG PER DAY
     Route: 048
  6. ARIPIPRAZOLE [Concomitant]
     Indication: DEPRESSION
     Dosage: 10MG PER DAY
     Route: 048
  7. FERROUS SULFATE TAB [Concomitant]
     Route: 065
  8. VITAMIN D [Concomitant]
     Route: 065
  9. VITAMIN B-12 [Concomitant]
     Route: 065

REACTIONS (13)
  - SKIN EXFOLIATION [None]
  - BODY TEMPERATURE INCREASED [None]
  - NEUTROPHIL COUNT INCREASED [None]
  - PARAKERATOSIS [None]
  - ACANTHOSIS [None]
  - RASH PUSTULAR [None]
  - ACUTE GENERALISED EXANTHEMATOUS PUSTULOSIS [None]
  - RASH ERYTHEMATOUS [None]
  - RASH MACULAR [None]
  - WHITE BLOOD CELL COUNT INCREASED [None]
  - BLOOD SODIUM DECREASED [None]
  - HYPERKERATOSIS [None]
  - GENERALISED OEDEMA [None]
